FAERS Safety Report 6474410-5 (Version None)
Quarter: 2009Q4

REPORT INFORMATION
  Report Type: 
  Country: None (occurrence: None)
  Receive Date: 20091123
  Receipt Date: 20091113
  Transmission Date: 20100525
  Serious: Yes (Life-Threatening, Other)
  Sender: FDA-Public Use
  Company Number: THYM-1001255

PATIENT
  Age: 42 Year
  Sex: Female
  Weight: 123 kg

DRUGS (11)
  1. THYMOGLOBULIN [Suspect]
     Indication: STEM CELL TRANSPLANT
     Dosage: 0.5 MG/KG, ONCE, INTRAVENOUS
     Route: 042
     Dates: start: 20091003, end: 20091003
  2. CYCLOSPORINE [Concomitant]
  3. ACYCLOVIR [Concomitant]
  4. AMBISOME [Concomitant]
  5. PANTOPRAZOLE SODIUM [Concomitant]
  6. MEROPENEUM (MEROPENEUM) [Concomitant]
  7. VANCOMYCIN [Concomitant]
  8. ALLOPURINOL [Concomitant]
  9. ACETAMINOPHEN [Concomitant]
  10. FENTANYL-100 [Concomitant]
  11. METOCLOPRAMIDE [Concomitant]

REACTIONS (8)
  - BLOOD PRESSURE DECREASED [None]
  - DIZZINESS [None]
  - FEBRILE NEUTROPENIA [None]
  - LOSS OF CONSCIOUSNESS [None]
  - MUCOSAL INFLAMMATION [None]
  - OXYGEN SATURATION DECREASED [None]
  - RESPIRATORY DISTRESS [None]
  - TACHYCARDIA [None]
